FAERS Safety Report 14096402 (Version 2)
Quarter: 2018Q1

REPORT INFORMATION
  Report Type: Spontaneous
  Country: FR (occurrence: FR)
  Receive Date: 20171017
  Receipt Date: 20180124
  Transmission Date: 20180508
  Serious: Yes (Other)
  Sender: FDA-Public Use
  Company Number: FR-MERCK KGAA-2030268

PATIENT
  Age: 61 Year
  Sex: Male

DRUGS (15)
  1. NOVOTHYROX [Suspect]
     Active Substance: LEVOTHYROXINE SODIUM
     Indication: POST PROCEDURAL HYPOTHYROIDISM
     Dates: start: 201703
  2. LEVOTHYROX 75 NF [Suspect]
     Active Substance: LEVOTHYROXINE SODIUM
     Dates: start: 201709
  3. BIPROFENID [Concomitant]
     Active Substance: KETOPROFEN
  4. LEVOTHYROX 75 NF [Suspect]
     Active Substance: LEVOTHYROXINE SODIUM
     Dates: start: 201710
  5. LEVOTHYROX 25 NF [Suspect]
     Active Substance: LEVOTHYROXINE SODIUM
     Dates: start: 201703
  6. LEVOTHYROX 25 NF [Suspect]
     Active Substance: LEVOTHYROXINE SODIUM
     Dates: start: 201709
  7. LEVOTHYROX 25 NF [Suspect]
     Active Substance: LEVOTHYROXINE SODIUM
     Dates: start: 201709
  8. SPASFON [Concomitant]
     Active Substance: PHLOROGLUCINOL\1,3,5-TRIMETHOXYBENZENE
  9. DOLIPRANE [Concomitant]
     Active Substance: ACETAMINOPHEN
  10. LEVOTHYROX 75 NF [Suspect]
     Active Substance: LEVOTHYROXINE SODIUM
     Dates: start: 201703
  11. DETENSIEL [Concomitant]
     Active Substance: BISOPROLOL FUMARATE
  12. STERDEX [Concomitant]
     Active Substance: DEXAMETHASONE\OXYTETRACYCLINE
  13. INIPOMP [Concomitant]
     Active Substance: PANTOPRAZOLE SODIUM
  14. LEVOTHYROX 75 NF [Suspect]
     Active Substance: LEVOTHYROXINE SODIUM
     Dates: start: 201709
  15. LEVOTHYROX 25 NF [Suspect]
     Active Substance: LEVOTHYROXINE SODIUM
     Dates: start: 201703

REACTIONS (17)
  - Tendonitis [None]
  - Headache [Not Recovered/Not Resolved]
  - Formication [None]
  - Blood thyroid stimulating hormone decreased [None]
  - Angina pectoris [None]
  - Abdominal distension [None]
  - Alopecia [Recovering/Resolving]
  - Fatigue [Not Recovered/Not Resolved]
  - Constipation [Not Recovered/Not Resolved]
  - Musculoskeletal discomfort [None]
  - Paraesthesia [None]
  - Swelling face [None]
  - Musculoskeletal stiffness [None]
  - Vertigo [Recovered/Resolved]
  - Feeling drunk [None]
  - Fall [None]
  - Dizziness [Not Recovered/Not Resolved]

NARRATIVE: CASE EVENT DATE: 2017
